FAERS Safety Report 8325305-3 (Version None)
Quarter: 2012Q2

REPORT INFORMATION
  Report Type: 
  Country: None (occurrence: None)
  Receive Date: 20120427
  Receipt Date: 20120420
  Transmission Date: 20120825
  Serious: Yes (Other)
  Sender: FDA-Public Use
  Company Number: PD 162

PATIENT

DRUGS (4)
  1. VALPROIC ACID [Concomitant]
  2. CARBAMAZEPINE [Concomitant]
  3. LEVETIRACETAM [Suspect]
     Indication: EPILEPSY
     Dosage: SEE SECTION 5
  4. LAMOTRIGINE [Concomitant]

REACTIONS (14)
  - RASH ERYTHEMATOUS [None]
  - CONVULSION [None]
  - STATUS EPILEPTICUS [None]
  - DEPRESSION [None]
  - EPILEPSY [None]
  - ATRIAL FIBRILLATION [None]
  - ARRHYTHMIA [None]
  - FOETAL DEATH [None]
  - WRIST FRACTURE [None]
  - HAND FRACTURE [None]
  - PSYCHOTIC DISORDER [None]
  - SUICIDAL IDEATION [None]
  - HEADACHE [None]
  - SCHIZOPHRENIA [None]
